FAERS Safety Report 7231231-3 (Version None)
Quarter: 2011Q1

REPORT INFORMATION
  Report Type: 
  Country: None (occurrence: None)
  Receive Date: 20110118
  Receipt Date: 20110106
  Transmission Date: 20110831
  Serious: Yes (Other)
  Sender: FDA-Public Use
  Company Number: B0693285A

PATIENT
  Sex: Male

DRUGS (1)
  1. ZINNAT [Suspect]
     Route: 065

REACTIONS (3)
  - HALLUCINATION, AUDITORY [None]
  - HALLUCINATION [None]
  - PHOBIA [None]
